FAERS Safety Report 25878225 (Version 1)
Quarter: 2025Q4

REPORT INFORMATION
  Report Type: Spontaneous
  Country: EU (occurrence: EU)
  Receive Date: 20251003
  Receipt Date: 20251003
  Transmission Date: 20260118
  Serious: Yes (Hospitalization, Other)
  Sender: RANBAXY
  Company Number: EU-SUN PHARMACEUTICAL INDUSTRIES LTD-2025RR-529484

PATIENT
  Age: 29 Year
  Sex: Female

DRUGS (5)
  1. GANIRELIX [Suspect]
     Active Substance: GANIRELIX
     Indication: Assisted reproductive technology
     Dosage: 0.13 MILLIGRAM, DAILY, DAYS 6-12
     Route: 065
  2. MENOTROPINS [Suspect]
     Active Substance: MENOTROPINS
     Indication: Assisted reproductive technology
     Dosage: 225 INTERNATIONAL UNIT, DAILY, DAY 1 AND 2
     Route: 065
  3. MENOTROPINS [Suspect]
     Active Substance: MENOTROPINS
     Dosage: 150 INTERNATIONAL UNIT, DAILY, DAYS 3-12
     Route: 065
  4. CHORIOGONADOTROPIN ALFA [Suspect]
     Active Substance: CHORIOGONADOTROPIN ALFA
     Indication: Assisted reproductive technology
     Dosage: 125 MCG IN TOTAL, DAY 12
     Route: 065
  5. TRIPTORELIN ACETATE [Suspect]
     Active Substance: TRIPTORELIN ACETATE
     Indication: Assisted reproductive technology
     Dosage: 2 DOSAGE FORM, SINGLE
     Route: 065

REACTIONS (3)
  - Ovarian hyperstimulation syndrome [Unknown]
  - Dyspnoea [Unknown]
  - Ascites [Unknown]

NARRATIVE: CASE EVENT DATE: 20250606
